FAERS Safety Report 25805271 (Version 1)
Quarter: 2025Q3

REPORT INFORMATION
  Report Type: Spontaneous
  Country: GB (occurrence: GB)
  Receive Date: 20250916
  Receipt Date: 20250916
  Transmission Date: 20251021
  Serious: Yes (Other)
  Sender: AUROBINDO
  Company Number: GB-MHRA-36550039

PATIENT
  Sex: Female

DRUGS (1)
  1. APIXABAN [Suspect]
     Active Substance: APIXABAN
     Indication: Product used for unknown indication
     Route: 065
     Dates: start: 202407

REACTIONS (5)
  - Hallucination [Not Recovered/Not Resolved]
  - Psychotic disorder [Recovered/Resolved]
  - Confusional state [Not Recovered/Not Resolved]
  - Mixed dementia [Unknown]
  - Unresponsive to stimuli [Unknown]
